FAERS Safety Report 13864918 (Version 1)
Quarter: 2017Q3

REPORT INFORMATION
  Report Type: Spontaneous
  Country: FR (occurrence: FR)
  Receive Date: 20170814
  Receipt Date: 20170814
  Transmission Date: 20171127
  Serious: Yes (Death, Life-Threatening, Hospitalization)
  Sender: FDA-Public Use
  Company Number: FR-PFIZER INC-2017346019

PATIENT
  Age: 69 Year
  Sex: Male

DRUGS (16)
  1. PEMETREXED. [Suspect]
     Active Substance: PEMETREXED
     Indication: LUNG ADENOCARCINOMA
     Dosage: 1000 MG, SINGLE (PER CYCLE)
     Route: 042
     Dates: start: 20170712, end: 20170712
  2. SPECIAFOLDINE [Suspect]
     Active Substance: FOLIC ACID
     Indication: PREMEDICATION
     Dosage: 0.4 MG, 1X/DAY
     Route: 048
     Dates: start: 20170627, end: 20170722
  3. LAROXYL [Concomitant]
     Active Substance: AMITRIPTYLINE
     Dosage: THREE TIMES DAILY (4 DROPS MORNING, 4 DROPS MIDDAY, AND 12 DROPS EVENING)
  4. FORLAX [Concomitant]
     Active Substance: POLYETHYLENE GLYCOL 4000
     Dosage: UNK
  5. METFORMIN [Concomitant]
     Active Substance: METFORMIN HYDROCHLORIDE
     Dosage: 850 MG, DAILY(350 MG MORNING AND 500 MG EVENING)
  6. EZETROL [Concomitant]
     Active Substance: EZETIMIBE
     Dosage: 10 MG, 1X/DAY (EVENING)
  7. PARACETAMOL [Concomitant]
     Active Substance: ACETAMINOPHEN
     Dosage: UNK
  8. CARBOPLATINE HOSPIRA [Suspect]
     Active Substance: CARBOPLATIN
     Indication: LUNG ADENOCARCINOMA
     Dosage: 620 MG, SINGLE (PER CYCLE)
     Route: 042
     Dates: start: 20170712, end: 20170712
  9. FUROSEMIDE. [Suspect]
     Active Substance: FUROSEMIDE
     Indication: OEDEMA PERIPHERAL
     Dosage: 40 MG, 1X/DAY
     Route: 048
     Dates: start: 20170713, end: 20170717
  10. TAHOR [Concomitant]
     Active Substance: ATORVASTATIN CALCIUM
     Dosage: 40 MG, 1X/DAY (EVENING)
  11. SKENAN [Concomitant]
     Active Substance: MORPHINE SULFATE
     Dosage: 30 MG, 2X/DAY
  12. KARDEGIC [Concomitant]
     Active Substance: ASPIRIN LYSINE
     Dosage: UNK
  13. NOVOMIX [Concomitant]
     Active Substance: INSULIN ASPART
     Dosage: UNK
  14. BISOCE [Concomitant]
     Active Substance: BISOPROLOL
     Dosage: 3.75 MG, 1X/DAY (MORNING)
  15. SOLUPRED /00016217/ [Suspect]
     Active Substance: PREDNISOLONE
     Indication: PREMEDICATION
     Dosage: 40 MG, 1X/DAY
     Route: 048
     Dates: start: 20170711, end: 20170712
  16. ZOPICLONE [Concomitant]
     Active Substance: ZOPICLONE
     Dosage: 1 DF, 1X/DAY (AT BEDTIME)

REACTIONS (7)
  - Pyrexia [Unknown]
  - Sepsis [Fatal]
  - Fatigue [Unknown]
  - Decreased appetite [Unknown]
  - Diarrhoea [Unknown]
  - Acute respiratory distress syndrome [Unknown]
  - Febrile neutropenia [Fatal]

NARRATIVE: CASE EVENT DATE: 20170715
